FAERS Safety Report 5719095-8 (Version None)
Quarter: 2008Q2

REPORT INFORMATION
  Report Type: 
  Country: None (occurrence: None)
  Receive Date: 20080423
  Receipt Date: 20070411
  Transmission Date: 20081010
  Serious: No
  Sender: FDA-Public Use
  Company Number: 000475

PATIENT
  Age: 82 Year
  Sex: Male

DRUGS (10)
  1. PLETAL [Suspect]
     Indication: INTERMITTENT CLAUDICATION
     Dosage: 100 MG, BID ORAL
     Route: 048
     Dates: start: 20070427, end: 20070720
  2. METFORMIN HCL [Concomitant]
  3. ISOSORBIDE DINITRATE [Concomitant]
  4. REPAGLINIDE [Concomitant]
  5. SPIRONOLACTONE [Concomitant]
  6. ACETYLSALICYLIC ACID (ACETYSALICYLIC ACID) [Concomitant]
  7. ATORVASTATIN CALCIUM [Concomitant]
  8. VALSARTAN [Concomitant]
  9. TAMSULOSIN HYDROCHLORIDE (TAMSULOSIN HYDROCHLORIDE) [Concomitant]
  10. ALLOPURINOL [Concomitant]

REACTIONS (1)
  - RENAL IMPAIRMENT [None]
